FAERS Safety Report 13259684 (Version 2)
Quarter: 2017Q1

REPORT INFORMATION
  Report Type: Report from Study
  Country: US (occurrence: US)
  Receive Date: 20170222
  Receipt Date: 20170309
  Transmission Date: 20170428
  Serious: No
  Sender: FDA-Public Use
  Company Number: PHEH2017US004731

PATIENT
  Age: 4 Year
  Sex: Male
  Weight: 15.9 kg

DRUGS (1)
  1. ILARIS [Suspect]
     Active Substance: CANAKINUMAB
     Indication: JUVENILE IDIOPATHIC ARTHRITIS
     Dosage: 60 MG, EVERY 4 WEEKS
     Route: 065

REACTIONS (5)
  - Nasal discharge discolouration [Unknown]
  - Pyrexia [Unknown]
  - Back pain [Unknown]
  - Malaise [Unknown]
  - Eye discharge [Unknown]

NARRATIVE: CASE EVENT DATE: 20170207
